FAERS Safety Report 4410054-4 (Version None)
Quarter: 2004Q3

REPORT INFORMATION
  Report Type: 
  Country: None (occurrence: None)
  Receive Date: 20040728
  Receipt Date: 20040719
  Transmission Date: 20050211
  Serious: Yes (Hospitalization, Other)
  Sender: FDA-Public Use
  Company Number: PHBS2004US09651

PATIENT
  Age: 14 Year
  Sex: Male

DRUGS (4)
  1. IMATINIB [Suspect]
     Indication: CHRONIC MYELOID LEUKAEMIA
     Dosage: 400 MG/D
     Route: 065
     Dates: start: 20010501
  2. IMATINIB [Suspect]
     Dosage: UNK, UNK
     Route: 065
  3. IMATINIB [Suspect]
     Dosage: 800 MG/D
     Route: 065
     Dates: start: 20030101
  4. IMATINIB [Suspect]
     Dosage: 1000 MG/D
     Route: 065

REACTIONS (20)
  - BLAST CELLS PRESENT [None]
  - BLAST CRISIS IN MYELOGENOUS LEUKAEMIA [None]
  - BONE NEOPLASM MALIGNANT [None]
  - BREATH SOUNDS DECREASED [None]
  - CHEST WALL MASS [None]
  - CHEST WALL PAIN [None]
  - CHROMOSOME ABNORMALITY [None]
  - CSF CELL COUNT ABNORMAL [None]
  - CSF TEST ABNORMAL [None]
  - DEAFNESS UNILATERAL [None]
  - DIZZINESS [None]
  - HEADACHE [None]
  - LEUKAEMIA [None]
  - MASS [None]
  - NAUSEA [None]
  - PAIN [None]
  - PLEURAL EFFUSION [None]
  - STEM CELL TRANSPLANT [None]
  - VOMITING [None]
  - WEIGHT DECREASED [None]
